FAERS Safety Report 23412462 (Version 1)
Quarter: 2024Q1

REPORT INFORMATION
  Report Type: Spontaneous
  Country: US (occurrence: US)
  Receive Date: 20240117
  Receipt Date: 20240117
  Transmission Date: 20240409
  Serious: No
  Sender: FDA-Public Use
  Company Number: US-NOVOPROD-1095960

PATIENT
  Age: 40 Year
  Sex: Male

DRUGS (2)
  1. OZEMPIC [Suspect]
     Active Substance: SEMAGLUTIDE
     Indication: Weight control
     Dosage: 0.5 WEEKLY
     Route: 058
     Dates: start: 20230316, end: 20230513
  2. LAMICTAL [Suspect]
     Active Substance: LAMOTRIGINE
     Indication: Mania
     Dosage: 150 MG, QD

REACTIONS (2)
  - Drug interaction [Not Recovered/Not Resolved]
  - Product use in unapproved indication [Not Recovered/Not Resolved]

NARRATIVE: CASE EVENT DATE: 20230518
